FAERS Safety Report 22623511 (Version 1)
Quarter: 2023Q2

REPORT INFORMATION
  Report Type: Spontaneous
  Country: CN (occurrence: CN)
  Receive Date: 20230621
  Receipt Date: 20230621
  Transmission Date: 20230722
  Serious: Yes (Hospitalization, Other)
  Sender: FDA-Public Use
  Company Number: None

PATIENT
  Age: 41 Year
  Sex: Female
  Weight: 52 kg

DRUGS (12)
  1. CYCLOPHOSPHAMIDE [Suspect]
     Active Substance: CYCLOPHOSPHAMIDE
     Indication: Non-Hodgkin^s lymphoma
     Dosage: 1.8 G, QD, DILUTED WITH 100 ML OF 0.9% SODIUM CHLORIDE INJECTION, FOURTH CYCLE OF CHEMOTHERAPY
     Route: 041
     Dates: start: 20230525, end: 20230525
  2. SODIUM CHLORIDE [Suspect]
     Active Substance: SODIUM CHLORIDE
     Indication: Vehicle solution use
     Dosage: 100 ML, QD, USED TO DILUTE 1.8 G OF CYCLOPHOSPHAMIDE FOR INJECTION
     Route: 041
     Dates: start: 20230525, end: 20230525
  3. SODIUM CHLORIDE [Suspect]
     Active Substance: SODIUM CHLORIDE
     Dosage: 300 ML, QD, USED TO DILUTE 0.6 MG OF VINCRISTINE SULFATE AND ETOPOSIDE 0.12G FOR INJECTION (INTRA PU
     Route: 050
     Dates: start: 20230521, end: 20230525
  4. SODIUM CHLORIDE [Suspect]
     Active Substance: SODIUM CHLORIDE
     Dosage: 100 ML, QD, USED TO DILUTE 100 MG OF RITUXIMAB INJECTION
     Route: 041
     Dates: start: 20230521, end: 20230521
  5. SODIUM CHLORIDE [Suspect]
     Active Substance: SODIUM CHLORIDE
     Dosage: 500 ML, QD, USED TO DILUTE 500 MG OF RITUXIMAB INJECTION
     Route: 041
     Dates: start: 20230521, end: 20230521
  6. DEXTROSE [Suspect]
     Active Substance: DEXTROSE\DEXTROSE MONOHYDRATE
     Indication: Vehicle solution use
     Dosage: 250 ML, QD, USED TO DILUTE 60 MG OF DOXORUBICIN HYDROCHLORIDE LIPOSOME INJECTION
     Route: 041
     Dates: start: 20230521, end: 20230521
  7. ETOPOSIDE [Suspect]
     Active Substance: ETOPOSIDE
     Indication: Non-Hodgkin^s lymphoma
     Dosage: 0.12 G, QD (INTRA-PUMP / MICRO-COMPUTER PUMP INJECTION), ALONG WITH 0.6 MG VINCRISTINE DILUTED WITH
     Route: 050
     Dates: start: 20230521, end: 20230525
  8. VINCRISTINE SULFATE [Suspect]
     Active Substance: VINCRISTINE SULFATE
     Indication: Non-Hodgkin^s lymphoma
     Dosage: 0.6 MG, QD, WITH 0.12G ETOPOSIDE DILUTED WITH 300ML OF 0.9% SODIUM CHLORIDE INJECTION (INTRA-PUMP/ M
     Route: 050
     Dates: start: 20230521, end: 20230525
  9. DOXORUBICIN HYDROCHLORIDE [Suspect]
     Active Substance: DOXORUBICIN HYDROCHLORIDE
     Indication: Non-Hodgkin^s lymphoma
     Dosage: 60 MG, QD, DILUTED WITH 250 ML OF 5% GLUCOSE INJECTION, FOURTH CYCLE OF CHEMOTHERAPY
     Route: 041
     Dates: start: 20230521, end: 20230521
  10. RITUXIMAB [Suspect]
     Active Substance: RITUXIMAB
     Indication: Non-Hodgkin^s lymphoma
     Dosage: 100 MG, QD, DILUTED WITH 100 ML OF 0.9% SODIUM CHLORIDE INJECTION, FOURTH CYCLE OF CHEMOTHERAPY
     Route: 041
     Dates: start: 20230521, end: 20230521
  11. RITUXIMAB [Suspect]
     Active Substance: RITUXIMAB
     Dosage: 500 MG, QD, DILUTED WITH 500 ML OF 0.9% SODIUM CHLORIDE INJECTION, FOURTH CYCLE OF CHEMOTHERAPY
     Route: 041
     Dates: start: 20230521, end: 20230521
  12. PREDNISOLONE ACETATE [Suspect]
     Active Substance: PREDNISOLONE ACETATE
     Indication: Non-Hodgkin^s lymphoma
     Dosage: 100 MG, QD
     Route: 048
     Dates: start: 20230521, end: 20230525

REACTIONS (3)
  - Myelosuppression [Recovering/Resolving]
  - Granulocyte count decreased [Recovering/Resolving]
  - Pyrexia [Recovered/Resolved]

NARRATIVE: CASE EVENT DATE: 20230531
